FAERS Safety Report 7981287-5 (Version None)
Quarter: 2011Q4

REPORT INFORMATION
  Report Type: 
  Country: None (occurrence: None)
  Receive Date: 20111215
  Receipt Date: 20111212
  Transmission Date: 20120403
  Serious: No
  Sender: FDA-Public Use
  Company Number: US-PFIZER INC-2011302732

PATIENT
  Sex: Female

DRUGS (3)
  1. FLECTOR [Suspect]
     Indication: MYALGIA
     Dosage: 2 DF, 2X/DAY
     Route: 062
     Dates: start: 20110301, end: 20110701
  2. FLECTOR [Suspect]
     Dosage: 4 DF, 2X/DAY
     Route: 061
     Dates: start: 20111003
  3. FLECTOR [Suspect]
     Dosage: UNK
     Dates: start: 20111212

REACTIONS (1)
  - DRUG INEFFECTIVE [None]
